FAERS Safety Report 5320597-7 (Version None)
Quarter: 2007Q1

REPORT INFORMATION
  Report Type: 
  Country: None (occurrence: None)
  Receive Date: 20070209
  Receipt Date: 20061113
  Transmission Date: 20070707
  Serious: No
  Sender: FDA-Public Use
  Company Number: 200619295US

PATIENT

DRUGS (1)
  1. APIDRA [Suspect]

REACTIONS (1)
  - BLOOD CREATININE INCREASED [None]
